FAERS Safety Report 20738515 (Version 1)
Quarter: 2022Q2

REPORT INFORMATION
  Report Type: Spontaneous
  Country: US (occurrence: US)
  Receive Date: 20220422
  Receipt Date: 20220422
  Transmission Date: 20220721
  Serious: No
  Sender: FDA-Public Use
  Company Number: US-ORGANON-O2204USA001208

PATIENT
  Sex: Female
  Weight: 65.77 kg

DRUGS (1)
  1. FOSAMAX [Suspect]
     Active Substance: ALENDRONATE SODIUM
     Indication: Osteoporosis
     Dosage: 1 TABLET
     Route: 048

REACTIONS (2)
  - Dermatitis herpetiformis [Unknown]
  - Drug hypersensitivity [Unknown]
